FAERS Safety Report 23565947 (Version 2)
Quarter: 2024Q1

REPORT INFORMATION
  Report Type: Spontaneous
  Country: AU (occurrence: None)
  Receive Date: 20240226
  Receipt Date: 20240318
  Transmission Date: 20240409
  Serious: Yes (Other)
  Sender: FDA-Public Use
  Company Number: AU-HQ-20240013

PATIENT
  Sex: Male

DRUGS (22)
  1. LINEZOLID [Suspect]
     Active Substance: LINEZOLID
     Indication: Congenital tuberculosis
     Route: 042
     Dates: start: 20220202
  2. PYRIDOXINE [Concomitant]
     Active Substance: PYRIDOXINE
     Indication: Congenital tuberculosis
     Route: 042
  3. OXYGEN [Concomitant]
     Active Substance: OXYGEN
     Indication: Chronic respiratory disease
     Dosage: ()
     Route: 045
  4. PROTIONAMIDE [Concomitant]
     Active Substance: PROTIONAMIDE
     Indication: Congenital tuberculosis
     Dosage: IN 2 DIVIDED DOSES
     Route: 048
  5. CYCLOSERINE [Concomitant]
     Active Substance: CYCLOSERINE
     Indication: Congenital tuberculosis
     Dosage: IN 2 DIVIDED DOSES
     Route: 048
  6. PYRIDOXINE [Concomitant]
     Active Substance: PYRIDOXINE
     Indication: Congenital tuberculosis
     Route: 048
  7. LINEZOLID [Suspect]
     Active Substance: LINEZOLID
     Indication: Congenital tuberculosis
     Dosage: IN 2 DIVIDED DOSES, FROM 12TH WEEK TO 6 MONTHS OF TREATMENT
     Route: 048
     Dates: start: 20220202
  8. LINEZOLID [Suspect]
     Active Substance: LINEZOLID
     Indication: Congenital tuberculosis
     Route: 048
  9. LINEZOLID [Suspect]
     Active Substance: LINEZOLID
     Indication: Congenital tuberculosis
     Route: 048
  10. MOXIFLOXACIN [Concomitant]
     Active Substance: MOXIFLOXACIN
     Indication: Congenital tuberculosis
  11. MOXIFLOXACIN [Concomitant]
     Active Substance: MOXIFLOXACIN
     Indication: Congenital tuberculosis
     Route: 040
  12. MOXIFLOXACIN [Concomitant]
     Active Substance: MOXIFLOXACIN
     Indication: Congenital tuberculosis
     Route: 048
  13. MOXIFLOXACIN [Concomitant]
     Active Substance: MOXIFLOXACIN
     Indication: Congenital tuberculosis
     Route: 048
  14. MOXIFLOXACIN [Concomitant]
     Active Substance: MOXIFLOXACIN
     Indication: Congenital tuberculosis
     Route: 048
  15. AMIKACIN [Concomitant]
     Active Substance: AMIKACIN
     Indication: Congenital tuberculosis
     Route: 041
  16. DELAMANID [Concomitant]
     Active Substance: DELAMANID
     Indication: Congenital tuberculosis
     Route: 048
  17. DELAMANID [Concomitant]
     Active Substance: DELAMANID
     Indication: Congenital tuberculosis
     Route: 048
  18. DELAMANID [Concomitant]
     Active Substance: DELAMANID
     Indication: Congenital tuberculosis
     Route: 048
  19. CLOFAZIMINE [Concomitant]
     Active Substance: CLOFAZIMINE
     Indication: Congenital tuberculosis
     Route: 048
  20. BEDAQUILINE [Concomitant]
     Active Substance: BEDAQUILINE
     Indication: Congenital tuberculosis
     Route: 048
  21. BEDAQUILINE [Concomitant]
     Active Substance: BEDAQUILINE
     Indication: Congenital tuberculosis
     Route: 048
  22. BEDAQUILINE [Concomitant]
     Active Substance: BEDAQUILINE
     Indication: Congenital tuberculosis
     Route: 048

REACTIONS (3)
  - Neutropenia [Recovered/Resolved]
  - Deafness neurosensory [Not Recovered/Not Resolved]
  - Off label use [Unknown]

NARRATIVE: CASE EVENT DATE: 20220404
